FAERS Safety Report 11054597 (Version 1)
Quarter: 2015Q2

REPORT INFORMATION
  Report Type: Spontaneous
  Country: US (occurrence: None)
  Receive Date: 20150421
  Receipt Date: 20150421
  Transmission Date: 20150821
  Serious: Yes (Hospitalization, Disabling)
  Sender: FDA-Public Use
  Company Number: None

PATIENT
  Age: 60 Year
  Sex: Female
  Weight: 63.5 kg

DRUGS (1)
  1. LEVAQUIN [Suspect]
     Active Substance: LEVOFLOXACIN
     Indication: UPPER RESPIRATORY TRACT INFECTION
     Dosage: 1 DAY IV DURING THE HOSPITAL STAY
     Route: 042

REACTIONS (8)
  - Headache [None]
  - Oral pain [None]
  - Oedema peripheral [None]
  - Pain in extremity [None]
  - Pain [None]
  - Mental status changes [None]
  - Confusional state [None]
  - Muscular weakness [None]

NARRATIVE: CASE EVENT DATE: 201503
